FAERS Safety Report 6890205-2 (Version None)
Quarter: 2010Q3

REPORT INFORMATION
  Report Type: 
  Country: None (occurrence: None)
  Receive Date: 20100730
  Receipt Date: 20080822
  Transmission Date: 20110219
  Serious: No
  Sender: FDA-Public Use
  Company Number: US-PFIZER INC-2008070513

PATIENT
  Sex: Male
  Weight: 88.181 kg

DRUGS (8)
  1. LIPITOR [Suspect]
     Indication: BLOOD CHOLESTEROL INCREASED
     Route: 048
     Dates: start: 20080101
  2. TOPROL-XL [Concomitant]
     Indication: MYOCARDIAL INFARCTION
  3. ALTACE [Concomitant]
     Indication: MYOCARDIAL INFARCTION
  4. LOVASTATIN [Concomitant]
     Indication: MYOCARDIAL INFARCTION
  5. ACETYLSALICYLIC ACID SRT [Concomitant]
     Indication: MYOCARDIAL INFARCTION
  6. CALCIUM [Concomitant]
  7. VITAMIN D [Concomitant]
  8. MULTIVITAMIN [Concomitant]

REACTIONS (1)
  - MUSCULAR WEAKNESS [None]
